FAERS Safety Report 14934592 (Version 3)
Quarter: 2018Q2

REPORT INFORMATION
  Report Type: Spontaneous
  Country: US (occurrence: US)
  Receive Date: 20180524
  Receipt Date: 20180629
  Transmission Date: 20180711
  Serious: Yes (Life-Threatening, Hospitalization)
  Sender: FDA-Public Use
  Company Number: US-IPSEN BIOPHARMACEUTICALS, INC.-2018-06998

PATIENT
  Age: 6 Year
  Sex: Male
  Weight: 23 kg

DRUGS (23)
  1. ONFI [Concomitant]
     Active Substance: CLOBAZAM
  2. ESOMEPRAZOLE [Concomitant]
     Active Substance: ESOMEPRAZOLE
  3. SINGULAIR [Concomitant]
     Active Substance: MONTELUKAST SODIUM
     Route: 048
  4. LUMINAL [Concomitant]
     Active Substance: PHENOBARBITAL SODIUM
  5. POLY-VI-SOL [Concomitant]
     Active Substance: VITAMINS
     Route: 048
  6. MIRALAX [Concomitant]
     Active Substance: POLYETHYLENE GLYCOL 3350
  7. ZONEGRAN [Concomitant]
     Active Substance: ZONISAMIDE
     Route: 048
  8. ALBUTEROL. [Concomitant]
     Active Substance: ALBUTEROL
     Indication: COUGH
     Dosage: INHALE 3 ML (2.5 MG) BY NEBULIZER 3 TIMES DAILY AND EVERY 4 HOURS
  9. CHILDRENS ZYRTEC ALLERGY [Concomitant]
     Active Substance: CETIRIZINE HYDROCHLORIDE
  10. DIASTAT ACUDIAL [Concomitant]
     Active Substance: DIAZEPAM
     Indication: SEIZURE
     Route: 054
  11. PULMOZYME [Concomitant]
     Active Substance: DORNASE ALFA
     Route: 055
  12. SODIUM CHLORIDE. [Concomitant]
     Active Substance: SODIUM CHLORIDE
     Indication: ILL-DEFINED DISORDER
     Dosage: 2 ML BY NEBULIZER 2-4 TIMES PER DAY
     Route: 055
  13. DYSPORT [Suspect]
     Active Substance: ABOBOTULINUMTOXINA
     Indication: MUSCLE SPASTICITY
     Dosage: 400 IU
     Route: 030
     Dates: start: 20180329, end: 20180329
  14. ALBUTEROL. [Concomitant]
     Active Substance: ALBUTEROL
     Indication: WHEEZING
     Dosage: INHALE 2 PUFFS EVERY 4 HOURS
     Route: 055
  15. ADVAIR HFA [Concomitant]
     Active Substance: FLUTICASONE PROPIONATE\SALMETEROL XINAFOATE
     Route: 055
  16. IBUPROFEN. [Concomitant]
     Active Substance: IBUPROFEN
     Indication: PYREXIA
     Dosage: 11 ML EVERY 6-8 HOURS
  17. BENADRYL [Concomitant]
     Active Substance: DIPHENHYDRAMINE HYDROCHLORIDE
     Dosage: 17.5 MG EVERY 8 HOURS
  18. EUCERIN [Concomitant]
     Active Substance: ENSULIZOLE\EUCERIN\OCTINOXATE\OCTISALATE\TITANIUM DIOXIDE\ZINC OXIDE
     Indication: DRY SKIN
  19. DYSPORT [Suspect]
     Active Substance: ABOBOTULINUMTOXINA
     Indication: MUSCLE SPASTICITY
  20. LIORESAL [Concomitant]
     Active Substance: BACLOFEN
     Route: 055
  21. FLONASE [Concomitant]
     Active Substance: FLUTICASONE PROPIONATE
     Route: 045
  22. ATROVENT [Concomitant]
     Active Substance: IPRATROPIUM BROMIDE
     Indication: ILL-DEFINED DISORDER
     Dosage: 0.5 MG 3 TIMES DAILY
     Route: 055
  23. VALIUM [Concomitant]
     Active Substance: DIAZEPAM

REACTIONS (1)
  - Seizure [Unknown]

NARRATIVE: CASE EVENT DATE: 20180330
